FAERS Safety Report 23861133 (Version 1)
Quarter: 2024Q2

REPORT INFORMATION
  Report Type: Spontaneous
  Country: ES (occurrence: ES)
  Receive Date: 20240516
  Receipt Date: 20240516
  Transmission Date: 20240716
  Serious: Yes (Hospitalization, Other)
  Sender: FDA-Public Use
  Company Number: ES-AMGEN-ESPSP2024093083

PATIENT

DRUGS (3)
  1. ADALIMUMAB [Suspect]
     Active Substance: ADALIMUMAB\ISOPROPYL ALCOHOL
     Indication: Uveitis
     Dosage: 80 MILLIGRAM
     Route: 058
  2. ADALIMUMAB [Suspect]
     Active Substance: ADALIMUMAB\ISOPROPYL ALCOHOL
     Dosage: 40 MILLIGRAM (AT WEEK 1)
     Route: 058
  3. ADALIMUMAB [Suspect]
     Active Substance: ADALIMUMAB\ISOPROPYL ALCOHOL
     Dosage: 40 MILLIGRAM, Q2WK
     Route: 058

REACTIONS (18)
  - Peripheral sensory neuropathy [Unknown]
  - Central nervous system infection [Unknown]
  - Herpes ophthalmic [Unknown]
  - Uveitis [Unknown]
  - Lupus-like syndrome [Unknown]
  - Gastrointestinal disorder [Unknown]
  - Adverse drug reaction [Unknown]
  - Varicella zoster virus infection [Unknown]
  - Klebsiella urinary tract infection [Unknown]
  - Arthralgia [Unknown]
  - Drug ineffective [Unknown]
  - Drug specific antibody present [Unknown]
  - Influenza like illness [Unknown]
  - Antinuclear antibody positive [Unknown]
  - Skin infection [Unknown]
  - Injection site reaction [Unknown]
  - Headache [Unknown]
  - Herpes zoster [Unknown]
